FAERS Safety Report 5175365-6 (Version None)
Quarter: 2006Q4

REPORT INFORMATION
  Report Type: 
  Country: None (occurrence: None)
  Receive Date: 20061215
  Receipt Date: 20061204
  Transmission Date: 20070319
  Serious: Yes (Hospitalization)
  Sender: FDA-Public Use
  Company Number: PHBS2006NO18812

PATIENT
  Age: 30 Year
  Sex: Female

DRUGS (2)
  1. VOLTAREN [Suspect]
     Indication: POSTOPERATIVE ANALGESIA
     Dosage: 50 MG, TID
     Route: 048
     Dates: start: 20061102, end: 20061110
  2. PARACET [Concomitant]
     Indication: POSTOPERATIVE ANALGESIA
     Dosage: 1 G, QID

REACTIONS (11)
  - DIZZINESS [None]
  - ERYTHEMA [None]
  - LOSS OF CONSCIOUSNESS [None]
  - MALAISE [None]
  - OEDEMA PERIPHERAL [None]
  - PALLOR [None]
  - PRURITUS GENERALISED [None]
  - RASH [None]
  - SWELLING [None]
  - TREMOR [None]
  - URTICARIA GENERALISED [None]
